FAERS Safety Report 13189556 (Version 1)
Quarter: 2017Q1

REPORT INFORMATION
  Report Type: Spontaneous
  Country: US (occurrence: US)
  Receive Date: 20170206
  Receipt Date: 20170206
  Transmission Date: 20170428
  Serious: Yes (Hospitalization, Other)
  Sender: FDA-Public Use
  Company Number: US-BAYER-2015-015359

PATIENT
  Age: 64 Year
  Sex: Female
  Weight: 110 kg

DRUGS (6)
  1. BOCOCIZUMAB [Suspect]
     Active Substance: BOCOCIZUMAB
     Indication: HYPERCHOLESTEROLAEMIA
     Dosage: 150 MG, Q2WK
     Route: 058
     Dates: start: 20140326, end: 20150311
  2. SIMVASTATIN. [Concomitant]
     Active Substance: SIMVASTATIN
     Dosage: 80 MG, QD
  3. BAYER GENUINE ASPIRIN [Suspect]
     Active Substance: ASPIRIN
     Indication: ISCHAEMIC HEART DISEASE PROPHYLAXIS
     Dosage: 325 MG, QD
     Route: 048
     Dates: start: 2009, end: 20150111
  4. MOBIC [Suspect]
     Active Substance: MELOXICAM
     Indication: ARTHRITIS
     Dosage: 15 MG, QD
     Route: 048
     Dates: start: 2011, end: 20150111
  5. BAYER GENUINE ASPIRIN [Suspect]
     Active Substance: ASPIRIN
     Indication: CARDIOVASCULAR EVENT PROPHYLAXIS
  6. PLAVIX [Suspect]
     Active Substance: CLOPIDOGREL BISULFATE
     Indication: CARDIOVASCULAR EVENT PROPHYLAXIS
     Dosage: 1 DF, QD
     Route: 048
     Dates: start: 20141208

REACTIONS (2)
  - Peptic ulcer haemorrhage [Recovered/Resolved]
  - Faeces discoloured [Recovered/Resolved]

NARRATIVE: CASE EVENT DATE: 20150103
